FAERS Safety Report 7591034-7 (Version None)
Quarter: 2011Q3

REPORT INFORMATION
  Report Type: 
  Country: None (occurrence: None)
  Receive Date: 20110705
  Receipt Date: 20110630
  Transmission Date: 20111222
  Serious: Yes (Hospitalization, Disabling, Other)
  Sender: FDA-Public Use
  Company Number: US-PFIZER INC-2011088484

PATIENT
  Sex: Female

DRUGS (6)
  1. LAMICTAL [Concomitant]
     Indication: BIPOLAR DISORDER
     Dosage: UNK
     Dates: start: 20040101
  2. CHANTIX [Suspect]
     Indication: SMOKING CESSATION THERAPY
     Dosage: 0.5 MG/1 MG
     Dates: start: 20070501, end: 20070601
  3. CHANTIX [Suspect]
     Dosage: 0.5 MG/1 MG
     Dates: start: 20070801
  4. CELEXA [Concomitant]
     Indication: DEPRESSION
     Dosage: UNK
     Dates: start: 20060101
  5. ATIVAN [Concomitant]
     Indication: ANXIETY
     Dosage: UNK
     Dates: start: 19990101
  6. RISPERIDONE [Concomitant]
     Indication: BIPOLAR DISORDER
     Dosage: UNK
     Dates: start: 20040101

REACTIONS (8)
  - DEPRESSION [None]
  - SUICIDE ATTEMPT [None]
  - POST-TRAUMATIC STRESS DISORDER [None]
  - ABNORMAL BEHAVIOUR [None]
  - BIPOLAR DISORDER [None]
  - AGGRESSION [None]
  - INTENTIONAL OVERDOSE [None]
  - ANXIETY [None]
